FAERS Safety Report 19761829 (Version 1)
Quarter: 2021Q3

REPORT INFORMATION
  Report Type: Spontaneous
  Country: US (occurrence: US)
  Receive Date: 20210827
  Receipt Date: 20210827
  Transmission Date: 20211014
  Serious: Yes (Death, Disabling, Other)
  Sender: FDA-Public Use
  Company Number: US-PURDUE-USA-2020-0282696

PATIENT
  Sex: Male

DRUGS (1)
  1. OXYCONTIN [Suspect]
     Active Substance: OXYCODONE HYDROCHLORIDE
     Indication: PRODUCT USED FOR UNKNOWN INDICATION
     Dosage: UNKNOWN
     Route: 048

REACTIONS (9)
  - Bone cancer [Fatal]
  - Drug abuse [Unknown]
  - Drug diversion [Unknown]
  - Homicidal ideation [Unknown]
  - Drug dependence [Unknown]
  - Drug tolerance [Unknown]
  - Aggression [Unknown]
  - Personality change [Unknown]
  - Abnormal behaviour [Unknown]
